FAERS Safety Report 10517036 (Version 6)
Quarter: 2016Q4

REPORT INFORMATION
  Report Type: Spontaneous
  Country: FR (occurrence: FR)
  Receive Date: 20141014
  Receipt Date: 20161101
  Transmission Date: 20170206
  Serious: Yes (Death, Disabling, Other)
  Sender: FDA-Public Use
  Company Number: FR-MYLANLABS-2007S1013366

PATIENT

DRUGS (14)
  1. MERCAPTAMINE [Suspect]
     Active Substance: CYSTEAMINE
     Dosage: 40 MG/KG, QD
     Route: 048
  2. ALPHACALCIDOL [Concomitant]
     Active Substance: ALFACALCIDOL
     Dosage: UNK
     Route: 065
     Dates: start: 20030402
  3. LEVOCARNIL [Concomitant]
     Active Substance: LEVOCARNITINE
     Dosage: UNK
     Route: 065
  4. MERCAPTAMINE [Suspect]
     Active Substance: CYSTEAMINE
     Dosage: 20 MG/KG, QD
     Route: 048
  5. MERCAPTAMINE [Suspect]
     Active Substance: CYSTEAMINE
     Dosage: 300 MG, QD
     Route: 048
  6. MERCAPTAMINE [Suspect]
     Active Substance: CYSTEAMINE
     Dosage: ??
  7. LOXEN [Concomitant]
     Active Substance: NICARDIPINE HYDROCHLORIDE
     Dosage: UNK
     Route: 065
  8. PHOSPHONEUROS [Concomitant]
     Active Substance: CALCIUM PHOSPHATE, DIBASIC, ANHYDROUS\MAGNESIUM GLYCEROPHOSPHATE\PHOSPHORIC ACID\SODIUM PHOSPHATE, DIBASIC
     Dosage: UNK
     Route: 065
  9. MERCAPTAMINE [Suspect]
     Active Substance: CYSTEAMINE
     Indication: CYSTINOSIS
     Dosage: UNK UNK, QD
     Route: 048
     Dates: start: 20011019
  10. MERCAPTAMINE [Suspect]
     Active Substance: CYSTEAMINE
     Dosage: 1000 MG, QD
     Dates: start: 200502
  11. INDOCID /00003801/ [Concomitant]
     Active Substance: INDOMETHACIN
     Dosage: UNK
     Route: 065
     Dates: start: 20020430
  12. MERCAPTAMINE [Suspect]
     Active Substance: CYSTEAMINE
     Dosage: 800 MG, QD
     Route: 048
     Dates: start: 200110, end: 200502
  13. SODIUM BICARBONATE. [Concomitant]
     Active Substance: SODIUM BICARBONATE
     Dosage: UNK
     Route: 065
  14. POTASSIUM [Concomitant]
     Active Substance: POTASSIUM
     Dosage: UNK
     Route: 065

REACTIONS (13)
  - Intravascular papillary endothelial hyperplasia [Not Recovered/Not Resolved]
  - Subcutaneous abscess [Recovered/Resolved]
  - Toxicity to various agents [Not Recovered/Not Resolved]
  - Walking disability [Not Recovered/Not Resolved]
  - Skin fragility [Not Recovered/Not Resolved]
  - Gait disturbance [Not Recovered/Not Resolved]
  - Osteoporosis [Not Recovered/Not Resolved]
  - Bone deformity [Not Recovered/Not Resolved]
  - Infection [Fatal]
  - Skin fragility [Recovered/Resolved with Sequelae]
  - Bone pain [Not Recovered/Not Resolved]
  - Overdose [Recovered/Resolved]
  - Autism [Not Recovered/Not Resolved]
